FAERS Safety Report 6749163-3 (Version None)
Quarter: 2010Q2

REPORT INFORMATION
  Report Type: 
  Country: None (occurrence: None)
  Receive Date: 20100601
  Receipt Date: 20100520
  Transmission Date: 20101027
  Serious: Yes (Hospitalization, Disabling, Other)
  Sender: FDA-Public Use
  Company Number: US-BAYER-201021859NA

PATIENT
  Age: 51 Year
  Sex: Male

DRUGS (1)
  1. BETASERON [Suspect]
     Indication: MULTIPLE SCLEROSIS
     Dates: end: 20090901

REACTIONS (5)
  - ABASIA [None]
  - DEVICE RELATED INFECTION [None]
  - EAR INFECTION [None]
  - MULTIPLE SCLEROSIS RELAPSE [None]
  - SKIN NEOPLASM EXCISION [None]
